FAERS Safety Report 6166116-7 (Version None)
Quarter: 2009Q2

REPORT INFORMATION
  Report Type: 
  Country: None (occurrence: None)
  Receive Date: 20090422
  Receipt Date: 20090422
  Transmission Date: 20091009
  Serious: Yes (Life-Threatening)
  Sender: FDA-Public Use
  Company Number: None

PATIENT
  Age: 50 Year
  Sex: Male

DRUGS (2)
  1. ACTIVASE [Suspect]
     Dosage: ;;1,1 TOTAL
     Dates: start: 20081219, end: 20081219
  2. .... [Suspect]

REACTIONS (1)
  - CEREBRAL HAEMORRHAGE [None]
